FAERS Safety Report 7992561-0 (Version None)
Quarter: 2011Q4

REPORT INFORMATION
  Report Type: 
  Country: None (occurrence: None)
  Receive Date: 20111219
  Receipt Date: 20111215
  Transmission Date: 20120403
  Serious: Yes (Life-Threatening, Hospitalization, Disabling, Other)
  Sender: FDA-Public Use
  Company Number: PHHY2011CA51128

PATIENT
  Sex: Male

DRUGS (14)
  1. TASIGNA [Suspect]
     Dosage: 400 MG, BID
     Route: 048
     Dates: start: 20110610, end: 20110622
  2. DILANTIN [Concomitant]
  3. PLAVIX [Concomitant]
     Dosage: 75 MG, DAILY
     Route: 048
  4. PERINDOPRIL [Concomitant]
     Dosage: 2 MG, QHS
     Route: 048
  5. LYRICA [Concomitant]
     Dosage: 50 MG, TID
     Route: 048
  6. TASIGNA [Suspect]
     Dosage: 400 MG, QD
     Route: 048
     Dates: start: 20110606, end: 20110609
  7. CRESTOR [Concomitant]
     Dosage: 10 MG, QHS
     Route: 048
  8. TRENTAL [Concomitant]
     Dosage: 400 MG, BID
     Route: 048
  9. LASIX [Concomitant]
     Dosage: 40 MG, DAILY
     Route: 048
  10. VITAMIN D [Concomitant]
     Dosage: 1000 IU, DAILY
     Route: 048
  11. TASIGNA [Suspect]
     Indication: CHRONIC MYELOID LEUKAEMIA
     Dosage: 400 MG, BID
     Route: 048
     Dates: end: 20110605
  12. ADALAT CC [Concomitant]
     Dosage: 60 MG, DAILY
     Route: 048
  13. NITROGLYCERIN [Concomitant]
     Dosage: 0.4 MG, DAILY
  14. ZANTAC [Concomitant]
     Dosage: 150 MG, BID
     Route: 048

REACTIONS (13)
  - CARDIAC FAILURE CONGESTIVE [None]
  - PAIN [None]
  - PERIPHERAL ISCHAEMIA [None]
  - PHANTOM PAIN [None]
  - GOUT [None]
  - GROIN PAIN [None]
  - PAIN IN EXTREMITY [None]
  - PERIPHERAL VASCULAR DISORDER [None]
  - POSTOPERATIVE WOUND INFECTION [None]
  - PULMONARY OEDEMA [None]
  - WHITE BLOOD CELL COUNT INCREASED [None]
  - TACHYCARDIA [None]
  - RENAL FAILURE ACUTE [None]
